FAERS Safety Report 10484730 (Version 2)
Quarter: 2014Q4

REPORT INFORMATION
  Report Type: Spontaneous
  Country: GB (occurrence: GB)
  Receive Date: 20140930
  Receipt Date: 20141118
  Transmission Date: 20150528
  Serious: Yes (Death)
  Sender: FDA-Public Use
  Company Number: GB-TEVA-511724ISR

PATIENT
  Age: 49 Year
  Sex: Male
  Weight: 124.2 kg

DRUGS (3)
  1. COCODAMOL [Concomitant]
     Active Substance: ACETAMINOPHEN\CODEINE PHOSPHATE
     Indication: PAIN IN JAW
  2. IBUPROFEN. [Concomitant]
     Active Substance: IBUPROFEN
     Indication: PAIN IN JAW
  3. CO-AMOXILAV [Suspect]
     Active Substance: AMOXICILLIN\CLAVULANIC ACID
     Indication: BACTERIAL INFECTION
     Route: 040
     Dates: start: 20110720, end: 20140720

REACTIONS (3)
  - Anaphylactic reaction [Fatal]
  - Cardiac arrest [Fatal]
  - Tryptase increased [None]

NARRATIVE: CASE EVENT DATE: 20140720
